FAERS Safety Report 7550789-8 (Version None)
Quarter: 2011Q2

REPORT INFORMATION
  Report Type: 
  Country: None (occurrence: None)
  Receive Date: 20110616
  Receipt Date: 20110601
  Transmission Date: 20111010
  Serious: Yes (Hospitalization)
  Sender: FDA-Public Use
  Company Number: DK-JNJFOC-20110604871

PATIENT
  Sex: Male

DRUGS (1)
  1. TAPENTADOL [Suspect]
     Indication: NEURALGIA
     Route: 048
     Dates: start: 20110413, end: 20110502

REACTIONS (1)
  - UNRESPONSIVE TO STIMULI [None]
